FAERS Safety Report 18020435 (Version 1)
Quarter: 2020Q3

REPORT INFORMATION
  Report Type: Spontaneous
  Country: US (occurrence: US)
  Receive Date: 20200714
  Receipt Date: 20200714
  Transmission Date: 20201103
  Serious: No
  Sender: FDA-Public Use
  Company Number: US-BAYER-2020-137405

PATIENT
  Sex: Male

DRUGS (1)
  1. BILTRICIDE [Suspect]
     Active Substance: PRAZIQUANTEL
     Dosage: UNK
     Dates: start: 202006

REACTIONS (1)
  - Product supply issue [None]

NARRATIVE: CASE EVENT DATE: 2020
